FAERS Safety Report 10802363 (Version 1)
Quarter: 2015Q1

REPORT INFORMATION
  Report Type: Spontaneous
  Country: RU (occurrence: RU)
  Receive Date: 20150217
  Receipt Date: 20150217
  Transmission Date: 20150721
  Serious: Yes (Other)
  Sender: FDA-Public Use
  Company Number: RU-TEVA-541142ISR

PATIENT
  Age: 53 Year
  Sex: Female

DRUGS (6)
  1. LOZAP [Concomitant]
     Active Substance: LOSARTAN
     Route: 048
  2. ARIFON [Concomitant]
     Route: 048
  3. TAMOXIFEN [Suspect]
     Active Substance: TAMOXIFEN
     Route: 048
  4. THROMBO ASS [Concomitant]
     Active Substance: ASPIRIN
     Route: 048
  5. BETALOC [Concomitant]
     Active Substance: METOPROLOL TARTRATE
     Route: 048
  6. VASILIP [Concomitant]
     Route: 048

REACTIONS (5)
  - Dizziness [Recovered/Resolved]
  - Blood pressure fluctuation [Recovered/Resolved]
  - Chills [Recovered/Resolved]
  - Headache [Recovered/Resolved]
  - Diarrhoea [Recovered/Resolved]
